FAERS Safety Report 7503333-5 (Version None)
Quarter: 2011Q2

REPORT INFORMATION
  Report Type: 
  Country: None (occurrence: None)
  Receive Date: 20110524
  Receipt Date: 20110524
  Transmission Date: 20111010
  Serious: Yes (Other)
  Sender: FDA-Public Use
  Company Number: None

PATIENT
  Age: 32 Year
  Sex: Female
  Weight: 52.1637 kg

DRUGS (2)
  1. PRISTIQ [Suspect]
     Indication: ANXIETY
     Dosage: 100MG ONCE DAILY PO
     Route: 048
     Dates: start: 20100501, end: 20110520
  2. PRISTIQ [Suspect]
     Indication: DEPRESSION
     Dosage: 100MG ONCE DAILY PO
     Route: 048
     Dates: start: 20100501, end: 20110520

REACTIONS (7)
  - VISION BLURRED [None]
  - ANGER [None]
  - NAUSEA [None]
  - DRUG WITHDRAWAL SYNDROME [None]
  - ANXIETY [None]
  - LETHARGY [None]
  - EYE MOVEMENT DISORDER [None]
